FAERS Safety Report 9304064 (Version 1)
Quarter: 2013Q2

REPORT INFORMATION
  Report Type: Spontaneous
  Country: US (occurrence: US)
  Receive Date: 20130522
  Receipt Date: 20130522
  Transmission Date: 20140414
  Serious: No
  Sender: FDA-Public Use
  Company Number: US-ROXANE LABORATORIES, INC.-2013-RO-00825RO

PATIENT
  Age: 62 Year
  Sex: Female

DRUGS (8)
  1. PREDNISONE [Suspect]
     Indication: MYALGIA
     Dosage: 10 MG
     Dates: start: 201111
  2. KLOR-CON M [Suspect]
     Indication: BLOOD POTASSIUM DECREASED
     Dosage: 40 MEQ
     Route: 048
     Dates: start: 201004
  3. LORATADINE [Concomitant]
  4. ZETIA [Concomitant]
  5. FLECAINIDE [Concomitant]
  6. LISINOPRIL [Concomitant]
  7. FUROSEMIDE [Concomitant]
  8. COUMADIN [Concomitant]

REACTIONS (4)
  - Anxiety [Unknown]
  - Hunger [Unknown]
  - Weight increased [Unknown]
  - Myalgia [Not Recovered/Not Resolved]
